FAERS Safety Report 18544908 (Version 1)
Quarter: 2020Q4

REPORT INFORMATION
  Report Type: Spontaneous
  Country: US (occurrence: US)
  Receive Date: 20201125
  Receipt Date: 20201125
  Transmission Date: 20210114
  Serious: No
  Sender: FDA-Public Use
  Company Number: None

PATIENT
  Age: 33 Year
  Sex: Female
  Weight: 67.5 kg

DRUGS (1)
  1. DEXTROAMPHET SACCHARAT, AMPHET ASPARTATE, DEXTROAMPHET SULFATE AND AMPHET SULFAT [Suspect]
     Active Substance: AMPHETAMINE ASPARTATE\AMPHETAMINE SULFATE\DEXTROAMPHETAMINE SACCHARATE\DEXTROAMPHETAMINE SULFATE
     Indication: ATTENTION DEFICIT HYPERACTIVITY DISORDER
     Route: 048
     Dates: start: 20201109, end: 20201123

REACTIONS (9)
  - Hypersomnia [None]
  - Fatigue [None]
  - Product physical issue [None]
  - Drug ineffective [None]
  - Headache [None]
  - Depression [None]
  - Product quality issue [None]
  - Product taste abnormal [None]
  - Feeling abnormal [None]

NARRATIVE: CASE EVENT DATE: 20201109
